FAERS Safety Report 17064775 (Version 2)
Quarter: 2020Q1

REPORT INFORMATION
  Report Type: Report from Study
  Country: CA (occurrence: CA)
  Receive Date: 20191122
  Receipt Date: 20200114
  Transmission Date: 20200409
  Serious: Yes (Other)
  Sender: FDA-Public Use
  Company Number: CA-JNJFOC-20190927698

PATIENT
  Age: 76 Year
  Sex: Female
  Weight: 76.27 kg

DRUGS (2)
  1. TREMFYA [Suspect]
     Active Substance: GUSELKUMAB
     Indication: PSORIASIS
     Dosage: LAST INJECTION 26/JUL/2019
     Route: 058
     Dates: start: 20181115
  2. TREMFYA [Suspect]
     Active Substance: GUSELKUMAB
     Route: 058

REACTIONS (4)
  - Road traffic accident [Unknown]
  - Post-traumatic neck syndrome [Unknown]
  - Lower respiratory tract infection [Unknown]
  - Pruritus [Unknown]

NARRATIVE: CASE EVENT DATE: 2019
